FAERS Safety Report 7426107-2 (Version None)
Quarter: 2011Q2

REPORT INFORMATION
  Report Type: 
  Country: None (occurrence: None)
  Receive Date: 20110420
  Receipt Date: 20110411
  Transmission Date: 20111010
  Serious: Yes (Hospitalization, Other)
  Sender: FDA-Public Use
  Company Number: PHHY2010US55101

PATIENT
  Sex: Female
  Weight: 63 kg

DRUGS (20)
  1. EXJADE [Suspect]
     Dosage: 1000 MG, DAILY
     Route: 048
     Dates: start: 20100708
  2. EXJADE [Suspect]
     Indication: IRON OVERLOAD
     Dosage: 250 MG, DAILY
     Route: 048
     Dates: start: 20100819
  3. CITRACAL [Concomitant]
  4. HUMALOG [Concomitant]
  5. PRED FORTE [Concomitant]
     Indication: GLAUCOMA
     Dosage: UNK
  6. LISINOPRIL [Concomitant]
  7. MAGNESIUM [Concomitant]
  8. CHONDROITIN [Concomitant]
  9. ACETAMINOPHEN [Concomitant]
  10. LIPITOR [Concomitant]
     Indication: BLOOD CHOLESTEROL INCREASED
     Dosage: 40 MG, UNK
     Route: 048
  11. CLARITIN [Concomitant]
     Indication: SEASONAL ALLERGY
     Dosage: 10 MG,DAILY
     Route: 048
  12. GLUCOSAMINE [Concomitant]
  13. FOSAMAX [Concomitant]
  14. BLOOD TRANSFUSION [Concomitant]
  15. EXJADE [Suspect]
     Indication: MYELODYSPLASTIC SYNDROME
     Dosage: 250 MG, DAILY
     Route: 048
     Dates: start: 20100623, end: 20100806
  16. NEURONTIN [Concomitant]
  17. ASPIRIN [Concomitant]
  18. SYNTHROID [Concomitant]
     Indication: HYPOTHYROIDISM
     Dosage: 100 MG,DAILY
     Route: 048
  19. ZINC [Concomitant]
  20. DECITABINE [Concomitant]
     Dosage: UNK

REACTIONS (10)
  - FEBRILE NEUTROPENIA [None]
  - PLATELET COUNT DECREASED [None]
  - VISUAL IMPAIRMENT [None]
  - SYNCOPE [None]
  - NEUTROPHIL COUNT DECREASED [None]
  - HAEMOGLOBIN DECREASED [None]
  - HAEMATOCRIT DECREASED [None]
  - WHITE BLOOD CELL COUNT DECREASED [None]
  - HYPOTENSION [None]
  - DIZZINESS [None]
